FAERS Safety Report 25889046 (Version 3)
Quarter: 2025Q4

REPORT INFORMATION
  Report Type: Spontaneous
  Country: US (occurrence: US)
  Receive Date: 20251007
  Receipt Date: 20251117
  Transmission Date: 20260118
  Serious: Yes (Other)
  Sender: AMGEN
  Company Number: US-AMGEN-USASP2025195484

PATIENT
  Sex: Female

DRUGS (1)
  1. ARANESP [Suspect]
     Active Substance: DARBEPOETIN ALFA
     Indication: Product used for unknown indication
     Dosage: 4 MILLIGRAM, Q3WK
     Route: 065

REACTIONS (3)
  - Breast cancer [Unknown]
  - Fluid retention [Unknown]
  - Incorrect dose administered [Unknown]
